FAERS Safety Report 10595374 (Version 3)
Quarter: 2015Q1

REPORT INFORMATION
  Report Type: Spontaneous
  Country: DE (occurrence: DE)
  Receive Date: 20141120
  Receipt Date: 20150122
  Transmission Date: 20150720
  Serious: Yes (Life-Threatening, Hospitalization, Congenital Anomaly, Other)
  Sender: FDA-Public Use
  Company Number: DE-JNJFOC-20141105075

PATIENT
  Age: 0 Day
  Sex: Male
  Weight: 2.09 kg

DRUGS (16)
  1. FRISIUM [Suspect]
     Active Substance: CLOBAZAM
     Indication: IDIOPATHIC GENERALISED EPILEPSY
     Route: 064
  2. LAMOTRIGIN [Suspect]
     Active Substance: LAMOTRIGINE
     Indication: IDIOPATHIC GENERALISED EPILEPSY
     Route: 064
     Dates: start: 2008, end: 201305
  3. NEOSTIGMINE [Suspect]
     Active Substance: NEOSTIGMINE
     Indication: ILEUS PARALYTIC
     Route: 064
  4. PASPERTIN [Suspect]
     Active Substance: METOCLOPRAMIDE HYDROCHLORIDE
     Indication: ILEUS PARALYTIC
     Route: 064
  5. VITAMIN B6 [Concomitant]
     Active Substance: PYRIDOXINE HYDROCHLORIDE
     Indication: VITAMIN B6 DEFICIENCY
     Route: 064
  6. KEPPRA [Suspect]
     Active Substance: LEVETIRACETAM
     Indication: IDIOPATHIC GENERALISED EPILEPSY
     Dosage: INITIALLY 3*250MG; WEEK 21: 2G/D I.V; THEN 3000 MG/D (1000MG, 3 TIMES A DAY)
     Route: 064
     Dates: end: 20131011
  7. VITAMIN B12 [Concomitant]
     Active Substance: CYANOCOBALAMIN
     Indication: VITAMIN B12 DEFICIENCY
     Route: 064
  8. PROPOFOL. [Suspect]
     Active Substance: PROPOFOL
     Indication: IDIOPATHIC GENERALISED EPILEPSY
     Route: 064
     Dates: start: 20130625, end: 20130703
  9. ERGENYL CHRONO [Suspect]
     Active Substance: VALPROIC ACID
     Indication: IDIOPATHIC GENERALISED EPILEPSY
     Route: 064
     Dates: start: 20130625, end: 20131011
  10. MIDAZOLAM [Suspect]
     Active Substance: MIDAZOLAM\MIDAZOLAM HYDROCHLORIDE
     Indication: IDIOPATHIC GENERALISED EPILEPSY
     Route: 064
     Dates: start: 20130625, end: 20130703
  11. CEFUROXIM [Suspect]
     Active Substance: CEFUROXIME
     Indication: URINARY TRACT INFECTION BACTERIAL
     Route: 064
  12. TOPAMAX [Suspect]
     Active Substance: TOPIRAMATE
     Indication: IDIOPATHIC GENERALISED EPILEPSY
     Route: 064
     Dates: start: 20130625, end: 20131011
  13. LORAZEPAM. [Suspect]
     Active Substance: LORAZEPAM
     Indication: IDIOPATHIC GENERALISED EPILEPSY
     Route: 064
     Dates: start: 20130624
  14. AMPICILLIN [Suspect]
     Active Substance: AMPICILLIN
     Indication: URINARY TRACT INFECTION BACTERIAL
     Route: 064
  15. FOLSAN [Concomitant]
     Active Substance: FOLIC ACID
     Indication: PROPHYLAXIS OF NEURAL TUBE DEFECT
     Route: 064
  16. DIAZEPAM. [Suspect]
     Active Substance: DIAZEPAM
     Indication: IDIOPATHIC GENERALISED EPILEPSY
     Route: 064

REACTIONS (11)
  - Retrognathia [Not Recovered/Not Resolved]
  - Atrial septal defect [Not Recovered/Not Resolved]
  - Foetal exposure during pregnancy [Recovered/Resolved]
  - Floppy infant [Recovered/Resolved]
  - Premature baby [Recovering/Resolving]
  - Prominent epicanthal folds [Not Recovered/Not Resolved]
  - Bradycardia neonatal [Recovered/Resolved]
  - Metabolic acidosis [Recovered/Resolved]
  - Low set ears [Not Recovered/Not Resolved]
  - Small for dates baby [Recovering/Resolving]
  - Neonatal respiratory distress syndrome [Recovered/Resolved]

NARRATIVE: CASE EVENT DATE: 20131011
